FAERS Safety Report 16495296 (Version 1)
Quarter: 2019Q2

REPORT INFORMATION
  Report Type: Not Available
  Country: US (occurrence: US)
  Receive Date: 20190628
  Receipt Date: 20190628
  Transmission Date: 20190711
  Serious: No
  Sender: FDA-Public Use
  Company Number: US-NEUROCRINE BIOSCIENCES INC.-2019NBI01666

PATIENT
  Age: 69 Year
  Sex: Female

DRUGS (9)
  1. BELSOMRA [Concomitant]
     Active Substance: SUVOREXANT
  2. VITAMIN B12 [Concomitant]
     Active Substance: CYANOCOBALAMIN
  3. INGREZZA [Suspect]
     Active Substance: VALBENAZINE
     Indication: TARDIVE DYSKINESIA
     Route: 048
     Dates: start: 20180129
  4. NAMENDA [Concomitant]
     Active Substance: MEMANTINE HYDROCHLORIDE
  5. LISINOPRIL. [Concomitant]
     Active Substance: LISINOPRIL
  6. LEXAPRO [Concomitant]
     Active Substance: ESCITALOPRAM OXALATE
  7. CLONAZEPAM. [Concomitant]
     Active Substance: CLONAZEPAM
  8. VITAMIN D [Concomitant]
     Active Substance: VITAMIN D NOS
  9. NICOTINE POLACRILEX [Concomitant]
     Active Substance: NICOTINE

REACTIONS (1)
  - Tardive dyskinesia [Unknown]

NARRATIVE: CASE EVENT DATE: 20190501
